FAERS Safety Report 8178018-5 (Version None)
Quarter: 2012Q1

REPORT INFORMATION
  Report Type: 
  Country: None (occurrence: None)
  Receive Date: 20120301
  Receipt Date: 20120223
  Transmission Date: 20120608
  Serious: Yes (Death, Hospitalization)
  Sender: FDA-Public Use
  Company Number: US-CELGENEUS-163-21880-11033563

PATIENT
  Sex: Female
  Weight: 52.6 kg

DRUGS (26)
  1. M.V.I. [Concomitant]
     Dosage: 1 TABLET
     Route: 065
  2. INSULIN [Concomitant]
     Route: 065
  3. AZACITIDINE [Suspect]
     Indication: MULTIPLE MYELOMA
     Dosage: 44.4 MILLIGRAM
     Route: 058
     Dates: start: 20110111, end: 20110329
  4. LANSOPRAZOLE [Concomitant]
     Dosage: 30 MILLIGRAM
     Route: 065
  5. PRECEDEX [Concomitant]
     Route: 065
     Dates: start: 20110401
  6. LOSARTAN POTASSIUM [Concomitant]
     Dosage: 50 MILLIGRAM
     Route: 065
  7. CALCIUM W/ VITAMIN D [Concomitant]
     Dosage: 1 TABLET
     Route: 065
  8. OXYCODONE HCL [Concomitant]
     Dosage: 10 MILLIGRAM
     Route: 065
  9. LORAZEPAM [Concomitant]
     Indication: ANXIETY
     Dosage: 1-2 TABS
     Route: 065
  10. OXYGEN [Concomitant]
     Dosage: 2 LITERS
     Route: 045
     Dates: start: 20110401
  11. SEROQUEL [Concomitant]
     Route: 065
     Dates: start: 20110401
  12. PREDNISONE TAB [Concomitant]
     Route: 065
  13. SODIUM CHLORIDE [Concomitant]
     Dosage: 750 MILLICURIES
     Route: 065
  14. CEFTRIAXONE [Concomitant]
     Indication: URINARY TRACT INFECTION
     Route: 065
     Dates: start: 20110501
  15. LEVOTHYROXINE SODIUM [Concomitant]
     Dosage: 75 MILLIGRAM
     Route: 065
  16. VANCOMYCIN [Concomitant]
     Route: 065
     Dates: start: 20110401
  17. ALLEGRA [Concomitant]
     Route: 065
  18. MEROPENEM [Concomitant]
     Route: 065
     Dates: start: 20110401
  19. CIPROFLOXACIN [Concomitant]
     Route: 065
     Dates: start: 20110511
  20. ASPIRIN [Concomitant]
     Dosage: 81 MILLIGRAM
     Route: 065
  21. FUROSEMIDE [Concomitant]
     Dosage: 10 MILLIGRAM
     Route: 065
  22. REVLIMID [Suspect]
     Indication: MULTIPLE MYELOMA
     Dosage: 25 MILLIGRAM
     Route: 048
     Dates: start: 20110111, end: 20110329
  23. DEXAMETHASONE [Suspect]
     Route: 065
  24. SERTRALINE HYDROCHLORIDE [Concomitant]
     Dosage: 50 MILLIGRAM
     Route: 065
  25. OXYCONTIN [Concomitant]
     Dosage: 10 MILLIGRAM
     Route: 065
  26. VITAMIN B COMPLEX CAP [Concomitant]
     Dosage: 1 TABLET
     Route: 065

REACTIONS (3)
  - PLEURAL EFFUSION [None]
  - PULMONARY HYPERTENSION [None]
  - ATELECTASIS [None]
